FAERS Safety Report 9279077 (Version 3)
Quarter: 2014Q4

REPORT INFORMATION
  Report Type: Spontaneous
  Country: US (occurrence: US)
  Receive Date: 20130508
  Receipt Date: 20141210
  Transmission Date: 20150529
  Serious: Yes (Hospitalization)
  Sender: FDA-Public Use
  Company Number: PHEH2013US009944

PATIENT
  Age: 66 Year
  Sex: Female

DRUGS (14)
  1. METRONIDAZOLE. [Concomitant]
     Active Substance: METRONIDAZOLE
     Indication: PRODUCT USED FOR UNKNOWN INDICATION
     Route: 061
  2. VITAMIN D3 [Concomitant]
     Active Substance: CHOLECALCIFEROL
     Indication: PRODUCT USED FOR UNKNOWN INDICATION
     Dosage: 1 DF, QD
     Route: 048
  3. SYSTANE (HYPROMELLOSE 2910 (4000 MPA.S)) [Concomitant]
     Active Substance: HYPROMELLOSE 2910 (4000 MPA.S)
     Indication: PRODUCT USED FOR UNKNOWN INDICATION
     Route: 065
  4. ZITHROMAX [Concomitant]
     Active Substance: AZITHROMYCIN DIHYDRATE
     Indication: PRODUCT USED FOR UNKNOWN INDICATION
     Dosage: 250 MG, UNK
     Route: 048
  5. AMITRIPTYLINE [Concomitant]
     Active Substance: AMITRIPTYLINE
     Indication: PRODUCT USED FOR UNKNOWN INDICATION
     Dosage: 1 DF, QHS
     Route: 048
  6. TYLENOL [Concomitant]
     Active Substance: ACETAMINOPHEN
     Indication: PAIN
     Route: 065
  7. LEXAPRO [Concomitant]
     Active Substance: ESCITALOPRAM OXALATE
     Indication: PRODUCT USED FOR UNKNOWN INDICATION
     Dosage: 1 DF, QHS
     Route: 048
  8. IBUPROFEN. [Concomitant]
     Active Substance: IBUPROFEN
     Indication: PRODUCT USED FOR UNKNOWN INDICATION
     Dosage: 1 DF, TID
     Route: 048
  9. PRAVASTATIN [Concomitant]
     Active Substance: PRAVASTATIN\PRAVASTATIN SODIUM
     Indication: PRODUCT USED FOR UNKNOWN INDICATION
     Dosage: 1 DF, QD
     Route: 065
  10. CALCITRATE [Concomitant]
     Indication: PRODUCT USED FOR UNKNOWN INDICATION
     Dosage: 1 DF, QD
     Route: 048
  11. OCUVITE PRESERVISION [Concomitant]
     Indication: PRODUCT USED FOR UNKNOWN INDICATION
     Dosage: 1 DF, BID
     Route: 048
  12. GILENYA [Suspect]
     Active Substance: FINGOLIMOD HYDROCHLORIDE
     Indication: MULTIPLE SCLEROSIS
     Dosage: 1 DF, QD
     Route: 048
     Dates: start: 20121011
  13. BACLOFEN. [Concomitant]
     Active Substance: BACLOFEN
     Indication: PRODUCT USED FOR UNKNOWN INDICATION
     Dosage: 1 DF, BID
     Route: 048
  14. DALFAMPRIDINE [Concomitant]
     Active Substance: DALFAMPRIDINE
     Indication: PRODUCT USED FOR UNKNOWN INDICATION
     Dosage: 10 MG, UNK
     Route: 048

REACTIONS (39)
  - Herpes zoster meningoencephalitis [Recovering/Resolving]
  - Confusional state [Unknown]
  - Mental status changes [Recovering/Resolving]
  - Syncope [Unknown]
  - Lethargy [Unknown]
  - Asthenia [Unknown]
  - Bruxism [Unknown]
  - Fall [Unknown]
  - Foaming at mouth [Unknown]
  - Tremor [Unknown]
  - Pyrexia [Unknown]
  - Blindness [Unknown]
  - Dysphagia [Unknown]
  - Transient ischaemic attack [Unknown]
  - Respiration abnormal [Unknown]
  - Depression [Unknown]
  - Dyslipidaemia [Unknown]
  - Lymphocyte count decreased [Unknown]
  - Loss of consciousness [Unknown]
  - Uveitis [Recovering/Resolving]
  - Rales [Unknown]
  - Normochromic normocytic anaemia [Unknown]
  - Dysarthria [Recovering/Resolving]
  - Multiple sclerosis relapse [Unknown]
  - Feeling abnormal [Unknown]
  - Urinary retention [Unknown]
  - Generalised tonic-clonic seizure [Unknown]
  - Aphasia [Unknown]
  - Hypophagia [Unknown]
  - Vasculitis [Unknown]
  - Cognitive disorder [Unknown]
  - Musculoskeletal discomfort [Unknown]
  - Malaise [Unknown]
  - Central nervous system lesion [Unknown]
  - No therapeutic response [Unknown]
  - Psychotic disorder [Unknown]
  - Somnolence [Unknown]
  - Visual impairment [Unknown]
  - Pneumonia aspiration [Unknown]

NARRATIVE: CASE EVENT DATE: 20130410
